FAERS Safety Report 11525326 (Version 1)
Quarter: 2015Q3

REPORT INFORMATION
  Report Type: Spontaneous
  Country: US (occurrence: US)
  Receive Date: 20150918
  Receipt Date: 20150918
  Transmission Date: 20151125
  Serious: No
  Sender: FDA-Public Use
  Company Number: US-TARO-2014TAR00221

PATIENT
  Sex: Female
  Weight: 61.22 kg

DRUGS (1)
  1. HYDROCORTISONE BUTYRATE CREAM USP 0.1% [Suspect]
     Active Substance: HYDROCORTISONE BUTYRATE
     Indication: SKIN EXFOLIATION
     Dosage: UNK UNK, 2X/DAY
     Route: 061
     Dates: start: 201406, end: 20140802

REACTIONS (1)
  - Drug ineffective [Not Recovered/Not Resolved]

NARRATIVE: CASE EVENT DATE: 2014
